FAERS Safety Report 5385015-1 (Version None)
Quarter: 2007Q3

REPORT INFORMATION
  Report Type: 
  Country: None (occurrence: None)
  Receive Date: 20070712
  Receipt Date: 20070703
  Transmission Date: 20080115
  Serious: Yes (Other)
  Sender: FDA-Public Use
  Company Number: PHBS2007BR11257

PATIENT
  Age: 52 Year
  Sex: Female
  Weight: 70 kg

DRUGS (6)
  1. CODATEN [Suspect]
     Indication: HERNIA
     Dosage: 1 TABLET,Q12H
     Route: 048
  2. GALENIC /HYDROCHLOROTHIAZIDE/IRBESARTAN/ [Concomitant]
     Indication: HYPERTENSION
     Dosage: 300 MG, QD
     Route: 048
  3. AMLOVASC [Concomitant]
     Indication: HYPERTENSION
     Dosage: 10 MG, BID
     Route: 048
  4. ATENOLOL [Concomitant]
     Dosage: 25 MG/DAY
     Route: 048
  5. AAS [Concomitant]
     Dosage: 1 TABLET/DAY
     Route: 048
  6. INSULIN [Concomitant]

REACTIONS (5)
  - ABDOMINAL PAIN UPPER [None]
  - PRURITUS GENERALISED [None]
  - UTERINE LEIOMYOMA [None]
  - VAGINAL HAEMORRHAGE [None]
  - VISION BLURRED [None]
